FAERS Safety Report 8176022-4 (Version None)
Quarter: 2012Q1

REPORT INFORMATION
  Report Type: 
  Country: None (occurrence: None)
  Receive Date: 20120301
  Receipt Date: 20120217
  Transmission Date: 20120608
  Serious: Yes (Other)
  Sender: FDA-Public Use
  Company Number: BE-RANBAXY-2012R1-53104

PATIENT
  Sex: Male

DRUGS (2)
  1. OXCARBAZEPINE [Suspect]
     Indication: PARTIAL SEIZURES
     Dosage: UNK
     Route: 065
  2. OXCARBAZEPINE [Suspect]
     Dosage: 1500 MG TWICE DAILY
     Route: 065

REACTIONS (2)
  - MYOCLONUS [None]
  - PETIT MAL EPILEPSY [None]
